FAERS Safety Report 22653430 (Version 1)
Quarter: 2023Q2

REPORT INFORMATION
  Report Type: Spontaneous
  Country: JP (occurrence: JP)
  Receive Date: 20230629
  Receipt Date: 20230629
  Transmission Date: 20230721
  Serious: Yes (Other)
  Sender: FDA-Public Use
  Company Number: JP-ASTELLAS-2023JP007635

PATIENT
  Age: 73 Year
  Sex: Male

DRUGS (2)
  1. XOSPATA [Suspect]
     Active Substance: GILTERITINIB
     Indication: Acute myeloid leukaemia recurrent
     Route: 048
  2. XOSPATA [Suspect]
     Active Substance: GILTERITINIB
     Indication: Acute myeloid leukaemia refractory
     Route: 048

REACTIONS (1)
  - Haemorrhage [Unknown]
